FAERS Safety Report 15165709 (Version 2)
Quarter: 2020Q3

REPORT INFORMATION
  Report Type: Report from Study
  Country: US (occurrence: US)
  Receive Date: 20180719
  Receipt Date: 20200908
  Transmission Date: 20201102
  Serious: Yes (Death, Hospitalization, Disabling, Other)
  Sender: FDA-Public Use
  Company Number: US-EMD SERONO-7252801

PATIENT
  Age: 72 Year
  Sex: Female

DRUGS (2)
  1. REBIF [Suspect]
     Active Substance: INTERFERON BETA-1A
     Dosage: PREVIOUSLY USED DEVICE: REBIDOSE. REBIF PREFILLED SYRINGE
     Route: 058
  2. REBIF [Suspect]
     Active Substance: INTERFERON BETA-1A
     Indication: MULTIPLE SCLEROSIS
     Route: 058
     Dates: start: 20040331, end: 20131122

REACTIONS (13)
  - General physical health deterioration [Unknown]
  - Dyspnoea [Unknown]
  - Pulmonary mass [Recovered/Resolved]
  - Limb injury [Recovering/Resolving]
  - Musculoskeletal stiffness [Unknown]
  - Lethargy [Unknown]
  - Bedridden [Not Recovered/Not Resolved]
  - Furuncle [Unknown]
  - Confusional state [Unknown]
  - Pneumonia [Recovered/Resolved]
  - Death [Fatal]
  - Decubitus ulcer [Not Recovered/Not Resolved]
  - Poor peripheral circulation [Unknown]

NARRATIVE: CASE EVENT DATE: 2010
